FAERS Safety Report 5176465-7 (Version None)
Quarter: 2006Q4

REPORT INFORMATION
  Report Type: 
  Country: None (occurrence: None)
  Receive Date: 20061207
  Receipt Date: 20061127
  Transmission Date: 20070319
  Serious: No
  Sender: FDA-Public Use
  Company Number: 2006-05949

PATIENT
  Age: 55 Year
  Sex: Female

DRUGS (5)
  1. ETOPOSIDE [Suspect]
     Indication: LYMPHOMA
     Dosage: CHOEP 4 REGIMEN
     Dates: start: 20040101, end: 20040101
  2. CYCLOSPORINE [Concomitant]
  3. ADRIAMYCIN PFS [Concomitant]
  4. ONCOVIN [Concomitant]
  5. PREDNISOLONE [Concomitant]

REACTIONS (2)
  - DISEASE RECURRENCE [None]
  - THROMBOPHLEBITIS [None]
